FAERS Safety Report 6458799-9 (Version None)
Quarter: 2009Q4

REPORT INFORMATION
  Report Type: 
  Country: None (occurrence: None)
  Receive Date: 20091120
  Receipt Date: 20091105
  Transmission Date: 20100525
  Serious: Yes (Death, Hospitalization)
  Sender: FDA-Public Use
  Company Number: 1000007272

PATIENT
  Age: 85 Year
  Sex: Female
  Weight: 83 kg

DRUGS (6)
  1. CELEXA [Suspect]
     Indication: DEPRESSION
     Dosage: 10 MG (10 MG, 1 IN 1 D), ORAL; 20 MG (20 MG, 1 IN 1 D), ORAL
     Route: 048
     Dates: start: 20080101, end: 20080101
  2. CELEXA [Suspect]
     Indication: DEPRESSION
     Dosage: 10 MG (10 MG, 1 IN 1 D), ORAL; 20 MG (20 MG, 1 IN 1 D), ORAL
     Route: 048
     Dates: start: 20080101
  3. RISPERDAL [Suspect]
     Indication: AGITATION
     Dosage: 6 MG (2 MG, 3 IN 1 D), ORAL
     Route: 048
     Dates: start: 20080101, end: 20080101
  4. HALDOL [Concomitant]
  5. LASIX [Concomitant]
  6. VANCOMYCIN [Concomitant]

REACTIONS (27)
  - ANXIETY [None]
  - CARDIAC FAILURE [None]
  - CHOKING [None]
  - CRYING [None]
  - DEHYDRATION [None]
  - DEMENTIA [None]
  - DYSARTHRIA [None]
  - DYSPHAGIA [None]
  - DYSSTASIA [None]
  - FEEDING DISORDER [None]
  - HYPERHIDROSIS [None]
  - HYPOKINESIA [None]
  - JOINT LOCK [None]
  - MOBILITY DECREASED [None]
  - MOVEMENT DISORDER [None]
  - MUSCLE RIGIDITY [None]
  - MUSCLE SPASMS [None]
  - MUSCULOSKELETAL STIFFNESS [None]
  - ORAL CANDIDIASIS [None]
  - OROPHARYNGEAL PAIN [None]
  - PAIN IN EXTREMITY [None]
  - PNEUMONIA ASPIRATION [None]
  - RENAL FAILURE [None]
  - SPEECH DISORDER [None]
  - TONGUE DISORDER [None]
  - TONGUE PARALYSIS [None]
  - URINE ABNORMALITY [None]
